FAERS Safety Report 17663874 (Version 1)
Quarter: 2020Q2

REPORT INFORMATION
  Report Type: Spontaneous
  Country: DE (occurrence: DE)
  Receive Date: 20200414
  Receipt Date: 20200414
  Transmission Date: 20200713
  Serious: Yes (Other)
  Sender: FDA-Public Use
  Company Number: DE-TEVA-2020-DE-1221776

PATIENT
  Age: 64 Year
  Sex: Male

DRUGS (1)
  1. PRAVASTATIN-RATIOPHARM 10 MG TABLETTEN [Suspect]
     Active Substance: PRAVASTATIN
     Indication: PROPHYLAXIS
     Route: 048
     Dates: start: 1995

REACTIONS (1)
  - Polyneuropathy [Not Recovered/Not Resolved]
